FAERS Safety Report 11632695 (Version 1)
Quarter: 2015Q4

REPORT INFORMATION
  Report Type: Spontaneous
  Country: BR (occurrence: BR)
  Receive Date: 20151015
  Receipt Date: 20151015
  Transmission Date: 20160304
  Serious: Yes (Death)
  Sender: FDA-Public Use
  Company Number: BR-PFIZER INC-2015345322

PATIENT
  Age: 89 Year
  Sex: Female
  Weight: 60 kg

DRUGS (2)
  1. ATORVASTATIN CALCIUM. [Suspect]
     Active Substance: ATORVASTATIN CALCIUM
     Dosage: 1 ^CMP^ (AS REPORTED), DAILY
     Route: 048
  2. PREGABALIN. [Suspect]
     Active Substance: PREGABALIN
     Dosage: 1 CMP (AS REPORTED) DAILY
     Route: 048

REACTIONS (2)
  - Pulmonary sepsis [Fatal]
  - Septic shock [Fatal]
